FAERS Safety Report 9686710 (Version 2)
Quarter: 2014Q1

REPORT INFORMATION
  Report Type: Spontaneous
  Country: GB (occurrence: GB)
  Receive Date: 20131113
  Receipt Date: 20140207
  Transmission Date: 20141002
  Serious: Yes (Hospitalization)
  Sender: FDA-Public Use
  Company Number: PHHY2013GB127978

PATIENT
  Age: 71 Year
  Sex: Female

DRUGS (8)
  1. CITALOPRAM [Suspect]
     Indication: DEPRESSION
     Dosage: 20 MG, QD
     Route: 048
     Dates: start: 20131004, end: 20131030
  2. OMEPRAZOLE [Suspect]
     Dosage: 20 MG, QD (RECENTLY STARTED)
     Route: 048
  3. ENALAPRIL [Suspect]
  4. BENDROFLUMETHIAZIDE [Suspect]
  5. LANSOPRAZOLE [Concomitant]
  6. DOMPERIDONE [Concomitant]
     Indication: ABDOMINAL DISTENSION
     Dosage: 10 MG, TID (WHEN NECESSARY.RECENTLY STARTED WITH OMEPRAZOLE FOR BLOATING)
     Route: 048
  7. LEVOTHYROXINE [Concomitant]
     Dosage: 100 UG, QD (LONGSTANDING TREATMENT)
     Route: 048
  8. ORAMORPH [Concomitant]
     Dosage: 5 MG, UNK
     Route: 048

REACTIONS (4)
  - Hyponatraemia [Recovering/Resolving]
  - Diarrhoea [Unknown]
  - Hallucination [Unknown]
  - Hypokalaemia [Unknown]
